FAERS Safety Report 9782979 (Version 3)
Quarter: 2014Q1

REPORT INFORMATION
  Report Type: Spontaneous
  Country: JP (occurrence: JP)
  Receive Date: 20131226
  Receipt Date: 20140103
  Transmission Date: 20141002
  Serious: Yes (Other)
  Sender: FDA-Public Use
  Company Number: JP-PFIZER INC-2013367790

PATIENT
  Age: 8 Decade
  Sex: Male

DRUGS (3)
  1. ADRIACIN [Suspect]
     Indication: NEOPLASM MALIGNANT
     Dosage: UNK
     Route: 042
  2. CISPLATIN [Suspect]
     Indication: NEOPLASM MALIGNANT
     Dosage: UNK
  3. FLUOROURACIL [Suspect]
     Indication: NEOPLASM MALIGNANT
     Dosage: UNK

REACTIONS (3)
  - Infusion site extravasation [Recovered/Resolved]
  - Skin necrosis [Recovered/Resolved]
  - Skin ulcer [Recovered/Resolved]
